FAERS Safety Report 22243512 (Version 5)
Quarter: 2023Q2

REPORT INFORMATION
  Report Type: Spontaneous
  Country: JP (occurrence: JP)
  Receive Date: 20230424
  Receipt Date: 20230525
  Transmission Date: 20230721
  Serious: Yes (Life-Threatening, Hospitalization, Other)
  Sender: FDA-Public Use
  Company Number: JP-PFIZER INC-PV202300069140

PATIENT
  Age: 80 Year
  Sex: Male

DRUGS (3)
  1. ENBREL [Suspect]
     Active Substance: ETANERCEPT
     Indication: Rheumatoid arthritis
     Dosage: ONCE A WEEK
     Route: 058
  2. METHOTREXATE [Concomitant]
     Active Substance: METHOTREXATE
     Indication: Rheumatoid arthritis
     Dosage: 2 MG, 2X/WEEK
     Route: 048
  3. URSO [Concomitant]
     Active Substance: URSODIOL
     Indication: Liver disorder
     Dosage: 200 MG, 2X/DAY
     Route: 048

REACTIONS (3)
  - Pancreatic carcinoma [Unknown]
  - Weight increased [Not Recovered/Not Resolved]
  - Carbohydrate antigen 19-9 increased [Unknown]

NARRATIVE: CASE EVENT DATE: 20220901
